FAERS Safety Report 17372799 (Version 1)
Quarter: 2020Q1

REPORT INFORMATION
  Report Type: Spontaneous
  Country: FR (occurrence: FR)
  Receive Date: 20200205
  Receipt Date: 20200205
  Transmission Date: 20200409
  Serious: Yes (Death)
  Sender: FDA-Public Use
  Company Number: FR-MYLANLABS-2020M1012937

PATIENT
  Age: 50 Year
  Sex: Male
  Weight: 90 kg

DRUGS (11)
  1. METHOTREXATE MYLAN 50 MG/2 ML, SOLUTION FOR INJECTION [Suspect]
     Active Substance: METHOTREXATE SODIUM
     Indication: B-CELL TYPE ACUTE LEUKAEMIA
     Dosage: 15 MILLIGRAM, CYCLE
     Route: 039
     Dates: start: 20191106, end: 20191106
  2. MYCAMINE [Concomitant]
     Active Substance: MICAFUNGIN SODIUM
     Dates: start: 20191114
  3. VANCOMYCINE                        /00314401/ [Concomitant]
     Active Substance: VANCOMYCIN
     Route: 042
     Dates: start: 20191121, end: 20191125
  4. LINEZOLIDE [Concomitant]
     Active Substance: LINEZOLID
     Route: 042
     Dates: start: 20191125
  5. BACTRIM [Concomitant]
     Active Substance: SULFAMETHOXAZOLE\TRIMETHOPRIM
     Route: 048
  6. ONCASPAR [Suspect]
     Active Substance: PEGASPARGASE
     Indication: B-CELL TYPE ACUTE LEUKAEMIA
     Dosage: 3750 INTERNATIONAL UNIT, CYCLE
     Route: 041
     Dates: start: 20191113, end: 20191113
  7. ZELITREX [Concomitant]
     Active Substance: VALACYCLOVIR HYDROCHLORIDE
     Route: 048
  8. BLINCYTO [Suspect]
     Active Substance: BLINATUMOMAB
     Indication: B-CELL TYPE ACUTE LEUKAEMIA
     Dosage: 3 DOSAGE FORM, CYCLE
     Route: 041
     Dates: start: 20191115, end: 20191126
  9. FORTUM                             /00559702/ [Concomitant]
     Active Substance: CEFTAZIDIME
     Route: 042
     Dates: start: 20191106
  10. CIPROFLOXACINE                     /00697201/ [Concomitant]
     Active Substance: CIPROFLOXACIN
     Dates: start: 20191125
  11. AMIKLIN                            /00391001/ [Concomitant]
     Active Substance: AMIKACIN SULFATE
     Route: 042
     Dates: start: 20191106

REACTIONS (3)
  - Cardiogenic shock [Fatal]
  - Intracardiac thrombus [Fatal]
  - Cerebral ischaemia [Fatal]

NARRATIVE: CASE EVENT DATE: 20191129
